FAERS Safety Report 9674544 (Version 1)
Quarter: 2013Q4

REPORT INFORMATION
  Report Type: Spontaneous
  Country: US (occurrence: None)
  Receive Date: 20131105
  Receipt Date: 20131105
  Transmission Date: 20140711
  Serious: Yes (Other)
  Sender: FDA-Public Use
  Company Number: None

PATIENT
  Sex: Female

DRUGS (1)
  1. SUMATRIPTAN [Suspect]
     Dosage: 100MG  Q2HPRN  PO
     Route: 048

REACTIONS (3)
  - Throat tightness [None]
  - Therapeutic response unexpected with drug substitution [None]
  - Product substitution issue [None]
